FAERS Safety Report 6412794-4 (Version None)
Quarter: 2009Q4

REPORT INFORMATION
  Report Type: 
  Country: None (occurrence: None)
  Receive Date: 20091023
  Receipt Date: 20091013
  Transmission Date: 20100525
  Serious: Yes (Other)
  Sender: FDA-Public Use
  Company Number: US-ELI_LILLY_AND_COMPANY-US200910003222

PATIENT
  Sex: Male

DRUGS (1)
  1. FORTEO [Suspect]
     Dates: start: 20090901

REACTIONS (5)
  - DYSPHAGIA [None]
  - FEAR [None]
  - HYPERHIDROSIS [None]
  - OEDEMA MOUTH [None]
  - PHARYNGEAL OEDEMA [None]
